FAERS Safety Report 12543683 (Version 1)
Quarter: 2016Q3

REPORT INFORMATION
  Report Type: Spontaneous
  Country: US (occurrence: US)
  Receive Date: 20160711
  Receipt Date: 20160711
  Transmission Date: 20161109
  Serious: Yes (Other)
  Sender: FDA-Public Use
  Company Number: US-JAZZ-2016-US-000204

PATIENT
  Sex: Male
  Weight: 79.37 kg

DRUGS (15)
  1. ZYRTEC [Concomitant]
     Active Substance: CETIRIZINE HYDROCHLORIDE
     Indication: HYPERSENSITIVITY
     Dosage: UNK
  2. EFFEXOR [Concomitant]
     Active Substance: VENLAFAXINE HYDROCHLORIDE
     Indication: DEPRESSION
     Dosage: UNK
  3. XYREM [Suspect]
     Active Substance: SODIUM OXYBATE
     Dosage: 2 G, SECOND DOSE
     Route: 048
  4. AUGMENTIN [Concomitant]
     Active Substance: AMOXICILLIN\CLAVULANATE POTASSIUM
     Indication: PRODUCT USED FOR UNKNOWN INDICATION
     Dosage: UNK
  5. PROPECIA [Concomitant]
     Active Substance: FINASTERIDE
     Indication: PRODUCT USED FOR UNKNOWN INDICATION
     Dosage: UNK
  6. XYREM [Suspect]
     Active Substance: SODIUM OXYBATE
     Indication: CATAPLEXY
     Dosage: 1.5 G, BID
     Route: 048
     Dates: start: 200708, end: 2007
  7. RESTORIL [Concomitant]
     Active Substance: TEMAZEPAM
     Indication: PRODUCT USED FOR UNKNOWN INDICATION
     Dosage: UNK
  8. XOPENEX [Concomitant]
     Active Substance: LEVALBUTEROL HYDROCHLORIDE
     Indication: ASTHMA EXERCISE INDUCED
     Dosage: UNK
  9. CELLCEPT [Concomitant]
     Active Substance: MYCOPHENOLATE MOFETIL\MYCOPHENOLATE MOFETIL HYDROCHLORIDE
     Indication: PRODUCT USED FOR UNKNOWN INDICATION
     Dosage: UNK
  10. NASONEX [Concomitant]
     Active Substance: MOMETASONE FUROATE
     Indication: PRODUCT USED FOR UNKNOWN INDICATION
     Dosage: UNK
  11. PROVIGIL [Concomitant]
     Active Substance: MODAFINIL
     Indication: NARCOLEPSY
     Dosage: UNK
  12. XYREM [Suspect]
     Active Substance: SODIUM OXYBATE
     Indication: NARCOLEPSY
     Dosage: DOSAGE ADJUSTMENT
  13. XYREM [Suspect]
     Active Substance: SODIUM OXYBATE
     Dosage: 2.75 G, FIRST DOSE
     Route: 048
  14. RITALIN [Concomitant]
     Active Substance: METHYLPHENIDATE HYDROCHLORIDE
     Indication: NARCOLEPSY
     Dosage: UNK
  15. EFFEXOR [Concomitant]
     Active Substance: VENLAFAXINE HYDROCHLORIDE
     Indication: ANXIETY

REACTIONS (1)
  - Sleep apnoea syndrome [Not Recovered/Not Resolved]

NARRATIVE: CASE EVENT DATE: 2010
